FAERS Safety Report 6306163-5 (Version None)
Quarter: 2009Q3

REPORT INFORMATION
  Report Type: 
  Country: None (occurrence: None)
  Receive Date: 20090812
  Receipt Date: 20090805
  Transmission Date: 20100115
  Serious: Yes (Hospitalization, Other)
  Sender: FDA-Public Use
  Company Number: US-ROCHE-628245

PATIENT
  Sex: Female
  Weight: 68.9 kg

DRUGS (2)
  1. CAPECITABINE [Suspect]
     Indication: BREAST CANCER
     Route: 048
     Dates: start: 20081007, end: 20090303
  2. CAPECITABINE [Suspect]
     Route: 048
     Dates: end: 20090701

REACTIONS (5)
  - DECREASED APPETITE [None]
  - DISEASE PROGRESSION [None]
  - FULL BLOOD COUNT DECREASED [None]
  - TUMOUR MARKER INCREASED [None]
  - WEIGHT DECREASED [None]
